FAERS Safety Report 24063126 (Version 1)
Quarter: 2024Q3

REPORT INFORMATION
  Report Type: Report from Study
  Country: GB (occurrence: GB)
  Receive Date: 20240709
  Receipt Date: 20240709
  Transmission Date: 20241017
  Serious: Yes (Other)
  Sender: TEVA
  Company Number: GB-TEVA-VS-3215354

PATIENT
  Sex: Female

DRUGS (7)
  1. LAMOTRIGINE [Suspect]
     Active Substance: LAMOTRIGINE
     Indication: Seizure
     Route: 065
  2. PREDNISOLONE [Suspect]
     Active Substance: PREDNISOLONE
     Indication: Autoinflammatory disease
     Dosage: SCHEDULED TO WEAN OFF BY 5 MG PER WEEK TO 5 MG DAILY
     Route: 048
  3. PREDNISOLONE [Suspect]
     Active Substance: PREDNISOLONE
     Indication: Autoinflammatory disease
     Route: 048
  4. BARICITINIB [Concomitant]
     Active Substance: BARICITINIB
     Indication: Autoinflammatory disease
     Dosage: THRICE DAILY
     Route: 065
  5. TOCILIZUMAB [Concomitant]
     Active Substance: TOCILIZUMAB
     Indication: Autoinflammatory disease
     Route: 042
  6. TOCILIZUMAB [Concomitant]
     Active Substance: TOCILIZUMAB
     Indication: Autoinflammatory disease
     Route: 058
  7. TOCILIZUMAB [Concomitant]
     Active Substance: TOCILIZUMAB
     Indication: Autoinflammatory disease
     Route: 042

REACTIONS (4)
  - Drug ineffective [Unknown]
  - Weight increased [Unknown]
  - Toxicity to various agents [Unknown]
  - Behaviour disorder [Unknown]
